FAERS Safety Report 13802202 (Version 1)
Quarter: 2017Q3

REPORT INFORMATION
  Report Type: Spontaneous
  Country: US (occurrence: US)
  Receive Date: 20170727
  Receipt Date: 20170727
  Transmission Date: 20171127
  Serious: Yes (Life-Threatening, Hospitalization, Disabling)
  Sender: FDA-Public Use
  Company Number: None

PATIENT
  Age: 53 Year
  Sex: Female
  Weight: 88.65 kg

DRUGS (2)
  1. DULOXETINE. [Suspect]
     Active Substance: DULOXETINE
     Indication: FIBROMYALGIA
     Dosage: ?          QUANTITY:1 CAPSULE(S);?
     Route: 048
  2. DULOXETINE. [Suspect]
     Active Substance: DULOXETINE
     Indication: MAJOR DEPRESSION
     Dosage: ?          QUANTITY:1 CAPSULE(S);?
     Route: 048

REACTIONS (10)
  - Suicide attempt [None]
  - Withdrawal syndrome [None]
  - Wrong technique in product usage process [None]
  - Confusional state [None]
  - Diarrhoea [None]
  - Loss of consciousness [None]
  - Paraesthesia [None]
  - Anger [None]
  - Aggression [None]
  - Amnesia [None]

NARRATIVE: CASE EVENT DATE: 20170726
